FAERS Safety Report 19697686 (Version 1)
Quarter: 2021Q3

REPORT INFORMATION
  Report Type: Report from Study
  Country: US (occurrence: US)
  Receive Date: 20210813
  Receipt Date: 20210813
  Transmission Date: 20211014
  Serious: Yes (Hospitalization, Other)
  Sender: FDA-Public Use
  Company Number: US-GLAXOSMITHKLINE-US2021AMR168218

PATIENT
  Age: 9 Year
  Sex: Female

DRUGS (20)
  1. CHOLBAM [Suspect]
     Active Substance: CHOLIC ACID
     Dosage: 250 MG, BID
     Route: 048
     Dates: start: 20210721
  2. AMOXICILLIN. [Concomitant]
     Active Substance: AMOXICILLIN
     Indication: PRODUCT USED FOR UNKNOWN INDICATION
     Dosage: UNK
  3. BECLOMETHASONE DIPROPIONATE [Concomitant]
     Active Substance: BECLOMETHASONE DIPROPIONATE
     Indication: PRODUCT USED FOR UNKNOWN INDICATION
     Dosage: UNK
  4. VITAMIN E [Concomitant]
     Active Substance: .ALPHA.-TOCOPHEROL
     Indication: HYPOVITAMINOSIS
     Dosage: 50 MG, BID
     Route: 048
  5. FLOVENT [Concomitant]
     Active Substance: FLUTICASONE PROPIONATE
     Indication: PRODUCT USED FOR UNKNOWN INDICATION
     Dosage: UNK
  6. FLUTICASONE PROPIONATE. [Suspect]
     Active Substance: FLUTICASONE PROPIONATE
     Indication: PRODUCT USED FOR UNKNOWN INDICATION
     Dosage: UNK
  7. LEVOFLOXACIN. [Suspect]
     Active Substance: LEVOFLOXACIN
     Indication: PYREXIA
     Dosage: UNK
     Dates: start: 20210717, end: 20210727
  8. FERROUS SULFATE. [Concomitant]
     Active Substance: FERROUS SULFATE
     Indication: PRODUCT USED FOR UNKNOWN INDICATION
     Dosage: UNK
  9. LEVOFLOXACIN. [Suspect]
     Active Substance: LEVOFLOXACIN
     Indication: PNEUMONIA
  10. CHOLBAM [Suspect]
     Active Substance: CHOLIC ACID
     Indication: PRODUCT USED FOR UNKNOWN INDICATION
     Dosage: 200 MG, QD
     Route: 048
     Dates: start: 20150310
  11. CHOLBAM [Suspect]
     Active Substance: CHOLIC ACID
     Dosage: 350 MG, QD
     Route: 048
     Dates: start: 20200509
  12. MEPHYTON [Concomitant]
     Active Substance: PHYTONADIONE
     Indication: PRODUCT USED FOR UNKNOWN INDICATION
     Dosage: UNK
  13. RIFAXIMIN. [Concomitant]
     Active Substance: RIFAXIMIN
     Indication: PRODUCT USED FOR UNKNOWN INDICATION
     Dosage: UNK
  14. PANTOPRAZOLE [Concomitant]
     Active Substance: PANTOPRAZOLE
     Indication: PRODUCT USED FOR UNKNOWN INDICATION
     Dosage: UNK
  15. LIDOCAINE. [Concomitant]
     Active Substance: LIDOCAINE
     Indication: PRODUCT USED FOR UNKNOWN INDICATION
     Dosage: UNK
  16. CHOLECALCIFEROL [Concomitant]
     Active Substance: CHOLECALCIFEROL
     Indication: PRODUCT USED FOR UNKNOWN INDICATION
     Dosage: 50 UG, QD
     Route: 048
  17. CALCITRIOL. [Concomitant]
     Active Substance: CALCITRIOL
     Indication: HYPOVITAMINOSIS
     Dosage: 0.25 UG, BID
     Route: 048
  18. PHYTONADIONE. [Concomitant]
     Active Substance: PHYTONADIONE
     Indication: PRODUCT USED FOR UNKNOWN INDICATION
     Dosage: UNK
  19. OMEPRAZOLE. [Concomitant]
     Active Substance: OMEPRAZOLE
     Indication: HELICOBACTER INFECTION
     Dosage: UNK
  20. CLARITHROMYCIN. [Concomitant]
     Active Substance: CLARITHROMYCIN
     Indication: HELICOBACTER INFECTION
     Dosage: UNK

REACTIONS (40)
  - Thrombocytopenia [Unknown]
  - Haematochezia [Unknown]
  - Splenomegaly [Unknown]
  - Biliary tract disorder [Unknown]
  - Blood bilirubin increased [Unknown]
  - Bronchitis [Recovered/Resolved]
  - Aspartate aminotransferase increased [Unknown]
  - Haemorrhage [Unknown]
  - Acute hepatic failure [Recovered/Resolved]
  - Vitamin D deficiency [Not Recovered/Not Resolved]
  - Ocular icterus [Unknown]
  - Oedema [Unknown]
  - Cholelithiasis [Unknown]
  - Platelet count decreased [Not Recovered/Not Resolved]
  - Vitamin A deficiency [Not Recovered/Not Resolved]
  - Atelectasis [Unknown]
  - Pyrexia [Unknown]
  - Coagulopathy [Unknown]
  - Blood alkaline phosphatase increased [Unknown]
  - Vitamin K deficiency [Not Recovered/Not Resolved]
  - Hypoxia [Unknown]
  - Chronic hepatic failure [Unknown]
  - Haematoma [Unknown]
  - Breath sounds abnormal [Unknown]
  - Epistaxis [Recovered/Resolved]
  - Condition aggravated [Unknown]
  - Bilirubin conjugated increased [Unknown]
  - Tonsillar haemorrhage [Recovered/Resolved]
  - Cholestasis [Not Recovered/Not Resolved]
  - Hepatic fibrosis [Unknown]
  - Periportal oedema [Unknown]
  - Pneumonia [Unknown]
  - Post procedural haemorrhage [Unknown]
  - Tachypnoea [Unknown]
  - Gamma-glutamyltransferase increased [Unknown]
  - Vitamin E deficiency [Not Recovered/Not Resolved]
  - Jaundice [Recovering/Resolving]
  - Varicose vein [Unknown]
  - Alanine aminotransferase increased [Unknown]
  - Prothrombin time prolonged [Not Recovered/Not Resolved]

NARRATIVE: CASE EVENT DATE: 20180607
